FAERS Safety Report 5429143-0 (Version None)
Quarter: 2007Q3

REPORT INFORMATION
  Report Type: 
  Country: None (occurrence: None)
  Receive Date: 20070829
  Receipt Date: 20070820
  Transmission Date: 20080115
  Serious: Yes (Hospitalization)
  Sender: FDA-Public Use
  Company Number: FR-ASTRAZENECA-2007CG01199

PATIENT
  Age: 57 Year
  Sex: Female

DRUGS (2)
  1. XYLOCAINE [Suspect]
     Indication: BACK PAIN
     Route: 058
     Dates: start: 20070523, end: 20070523
  2. VOLTAREN [Suspect]
     Indication: BACK PAIN
     Route: 058
     Dates: start: 20070523, end: 20070523

REACTIONS (1)
  - SEPTIC ARTHRITIS STAPHYLOCOCCAL [None]
